FAERS Safety Report 15334218 (Version 1)
Quarter: 2018Q3

REPORT INFORMATION
  Report Type: Spontaneous
  Country: US (occurrence: US)
  Receive Date: 20180827
  Receipt Date: 20180827
  Transmission Date: 20181010
  Serious: Yes (Hospitalization)
  Sender: FDA-Public Use
  Company Number: None

PATIENT
  Sex: Female
  Weight: 97 kg

DRUGS (2)
  1. TRETINOIN. [Suspect]
     Active Substance: TRETINOIN
     Dates: end: 20180821
  2. TRISENOX [Suspect]
     Active Substance: ARSENIC TRIOXIDE
     Dates: end: 20180821

REACTIONS (11)
  - Vomiting [None]
  - Headache [None]
  - Vision blurred [None]
  - Tinnitus [None]
  - Loss of consciousness [None]
  - Nausea [None]
  - Dizziness [None]
  - Ear pain [None]
  - Otitis externa [None]
  - Papilloedema [None]
  - Mastoiditis [None]

NARRATIVE: CASE EVENT DATE: 20180821
